FAERS Safety Report 16679922 (Version 2)
Quarter: 2019Q3

REPORT INFORMATION
  Report Type: Spontaneous
  Country: IN (occurrence: IN)
  Receive Date: 20190807
  Receipt Date: 20190809
  Transmission Date: 20191004
  Serious: Yes (Other)
  Sender: FDA-Public Use
  Company Number: IN-FRESENIUS KABI-FK201908663

PATIENT
  Age: 7 Year
  Sex: Male

DRUGS (6)
  1. CARBOPLATIN (MANUFACTURER UNKNOWN) [Suspect]
     Active Substance: CARBOPLATIN
     Indication: EXTRAOCULAR RETINOBLASTOMA
     Dosage: 500 MG/M2 PER DAY (D-8 TO D-6)
     Route: 065
  2. CISPLATIN (MANUFACTURER UNKNOWN) [Suspect]
     Active Substance: CISPLATIN
     Indication: EXTRAOCULAR RETINOBLASTOMA
     Route: 065
  3. ETOPOSIDE (MANUFACTURER UNKNOWN) [Suspect]
     Active Substance: ETOPOSIDE
     Indication: EXTRAOCULAR RETINOBLASTOMA
     Dosage: 250 MG/M2 PER DAY (D-5 TO D-3)
     Route: 065
  4. CYCLOPHOSPHAMIDE. [Suspect]
     Active Substance: CYCLOPHOSPHAMIDE
     Indication: EXTRAOCULAR RETINOBLASTOMA
     Route: 065
  5. THIOTEPA. [Suspect]
     Active Substance: THIOTEPA
     Indication: EXTRAOCULAR RETINOBLASTOMA
     Dosage: 300 MG/M2 PER DAY (D-5 TO D-3)
     Route: 065
  6. VINCRISTINE [Suspect]
     Active Substance: VINCRISTINE
     Indication: EXTRAOCULAR RETINOBLASTOMA
     Route: 065

REACTIONS (8)
  - Bone marrow failure [Recovered/Resolved]
  - Hypokalaemia [Recovered/Resolved]
  - Hyponatraemia [Recovered/Resolved]
  - Status epilepticus [Recovering/Resolving]
  - Hypomagnesaemia [Recovered/Resolved]
  - Cardiac arrest [Recovered/Resolved]
  - Hypertension [Unknown]
  - Hypocalcaemia [Recovered/Resolved]
